FAERS Safety Report 10198072 (Version 1)
Quarter: 2014Q2

REPORT INFORMATION
  Report Type: Spontaneous
  Country: US (occurrence: US)
  Receive Date: 20140527
  Receipt Date: 20140527
  Transmission Date: 20141212
  Serious: No
  Sender: FDA-Public Use
  Company Number: US-NOVEN-13US006852

PATIENT
  Age: 17 Year
  Sex: Female

DRUGS (3)
  1. DAYTRANA [Suspect]
     Indication: ATTENTION DEFICIT/HYPERACTIVITY DISORDER
     Dosage: 15 MG, UNK
     Route: 062
     Dates: start: 20130508
  2. DEPAKOTE [Concomitant]
     Dosage: 250 MG, BID
     Route: 048
  3. PAXIL [Concomitant]
     Dosage: 25 MG, UNK
     Route: 048

REACTIONS (5)
  - Change in sustained attention [Recovered/Resolved]
  - Feeling abnormal [None]
  - Restlessness [Recovered/Resolved]
  - Fatigue [Recovered/Resolved]
  - Decreased appetite [Recovered/Resolved]
